FAERS Safety Report 7311935-4 (Version None)
Quarter: 2011Q1

REPORT INFORMATION
  Report Type: 
  Country: None (occurrence: None)
  Receive Date: 20110224
  Receipt Date: 20110221
  Transmission Date: 20110831
  Serious: Yes (Other)
  Sender: FDA-Public Use
  Company Number: PHHY2011JP10726

PATIENT
  Sex: Female

DRUGS (10)
  1. CICLOSPORIN [Suspect]
     Indication: RENAL TRANSPLANT
     Dosage: UNK
     Route: 048
  2. METHYLPREDNISOLONE [Concomitant]
     Indication: RENAL TRANSPLANT
     Dosage: UNK
  3. MIZORIBINE [Concomitant]
     Indication: RENAL TRANSPLANT
     Dosage: UNK
  4. GUSPERIMUS HYDROCHLORIDE [Concomitant]
  5. TACROLIMUS [Concomitant]
     Indication: RENAL TRANSPLANT
     Dosage: UNK
  6. CICLOSPORIN [Suspect]
     Indication: VIRAL INFECTION
  7. CELLCEPT [Concomitant]
     Indication: RENAL TRANSPLANT
     Dosage: UNK
  8. SIMULECT [Suspect]
     Indication: RENAL TRANSPLANT
     Dosage: 20 MG, ONCE/SINGLE
     Route: 042
  9. METHYLPREDNISOLONE [Concomitant]
     Dosage: 500 MG, UNK
  10. METHYLPREDNISOLONE [Concomitant]
     Dosage: 60 MG, UNK

REACTIONS (11)
  - GLOMERULONEPHRITIS PROLIFERATIVE [None]
  - TRANSPLANT REJECTION [None]
  - RENAL IMPAIRMENT [None]
  - OVERWORK [None]
  - MALAISE [None]
  - BLOOD URINE PRESENT [None]
  - IGA NEPHROPATHY [None]
  - GASTROINTESTINAL DISORDER [None]
  - VIRAL INFECTION [None]
  - BLOOD CREATININE INCREASED [None]
  - TUBULOINTERSTITIAL NEPHRITIS [None]
